FAERS Safety Report 20653733 (Version 1)
Quarter: 2022Q1

REPORT INFORMATION
  Report Type: Spontaneous
  Country: NL (occurrence: NL)
  Receive Date: 20220330
  Receipt Date: 20220330
  Transmission Date: 20220423
  Serious: Yes (Other)
  Sender: FDA-Public Use
  Company Number: NL-LABORATORIOS LICONSA S.A.-2203NL01150

PATIENT
  Age: 74 Year
  Sex: Male

DRUGS (7)
  1. OMEPRAZOLE [Suspect]
     Active Substance: OMEPRAZOLE
     Indication: Product used for unknown indication
     Dosage: 40 MILLIGRAM, DAILY
  2. ASPIRIN [Concomitant]
     Active Substance: ASPIRIN
     Dosage: 80 MILLIGRAM, QD
  3. AMLODIPINE [Concomitant]
     Active Substance: AMLODIPINE BESYLATE
     Dosage: 10 MILLIGRAM, QD
  4. METOPROLOL [Concomitant]
     Active Substance: METOPROLOL
     Dosage: 150 MILLIGRAM, QD
  5. EZETIMIBE [Concomitant]
     Active Substance: EZETIMIBE
     Indication: Hyperlipidaemia
     Dosage: 10 MILLIGRAM, QD
  6. SIMVASTATIN [Concomitant]
     Active Substance: SIMVASTATIN
     Indication: Hypercholesterolaemia
     Dosage: 20 MILLIGRAM, QD
  7. INSULIN NOS [Concomitant]
     Active Substance: INSULIN NOS
     Dosage: UNK

REACTIONS (3)
  - Nephropathy toxic [Recovered/Resolved with Sequelae]
  - Proteinuria [Recovered/Resolved with Sequelae]
  - Renal failure [Recovered/Resolved with Sequelae]
